FAERS Safety Report 14149087 (Version 2)
Quarter: 2017Q4

REPORT INFORMATION
  Report Type: Spontaneous
  Country: US (occurrence: US)
  Receive Date: 20171101
  Receipt Date: 20171103
  Transmission Date: 20180321
  Serious: No
  Sender: FDA-Public Use
  Company Number: US-TEVA-820421ACC

PATIENT
  Sex: Female

DRUGS (1)
  1. PARAGARD T 380A [Suspect]
     Active Substance: COPPER
     Dosage: FOR 11 YEARS
     Dates: end: 20171024

REACTIONS (3)
  - Intentional product use issue [Unknown]
  - Complication associated with device [Unknown]
  - Device breakage [Unknown]
